FAERS Safety Report 5413826-2 (Version None)
Quarter: 2007Q3

REPORT INFORMATION
  Report Type: 
  Country: None (occurrence: None)
  Receive Date: 20070814
  Receipt Date: 20061030
  Transmission Date: 20080115
  Serious: No
  Sender: FDA-Public Use
  Company Number: US-BRISTOL-MYERS SQUIBB COMPANY-13560347

PATIENT
  Sex: Male

DRUGS (3)
  1. REYATAZ [Suspect]
     Indication: HIV INFECTION
     Dates: start: 20060701
  2. TRIZIVIR [Concomitant]
  3. NORVIR [Concomitant]

REACTIONS (1)
  - CAROTID ARTERY DISEASE [None]
